FAERS Safety Report 16276214 (Version 1)
Quarter: 2019Q2

REPORT INFORMATION
  Report Type: Report from Study
  Country: US (occurrence: US)
  Receive Date: 20190505
  Receipt Date: 20190505
  Transmission Date: 20190711
  Serious: No
  Sender: FDA-Public Use
  Company Number: PHEH2019US018963

PATIENT
  Sex: Female

DRUGS (1)
  1. COSENTYX [Suspect]
     Active Substance: SECUKINUMAB
     Indication: PSORIASIS
     Dosage: 300 MG, QW (AT WEEKS 0,1,2,3,4, THEN INJECT 2 PENS (300 MG), Q4W THEREAFTER)
     Route: 058

REACTIONS (2)
  - Cough [Unknown]
  - Bronchitis [Unknown]
